FAERS Safety Report 6593462-5 (Version None)
Quarter: 2010Q1

REPORT INFORMATION
  Report Type: 
  Country: None (occurrence: None)
  Receive Date: 20100222
  Receipt Date: 20090512
  Transmission Date: 20100710
  Serious: Yes (Other)
  Sender: FDA-Public Use
  Company Number: US-BRISTOL-MYERS SQUIBB COMPANY-14620553

PATIENT
  Age: 24 Year
  Sex: Female

DRUGS (1)
  1. ORENCIA [Suspect]
     Dosage: 3RD DOSE;INFUSION FINISHED AT 100ML PER HOUR;4TH INFUSION 50ML PER HOUR;

REACTIONS (5)
  - BLOOD PRESSURE INCREASED [None]
  - CHEST DISCOMFORT [None]
  - CHEST PAIN [None]
  - DYSPNOEA [None]
  - FLUSHING [None]
